FAERS Safety Report 7478208-0 (Version None)
Quarter: 2011Q2

REPORT INFORMATION
  Report Type: 
  Country: None (occurrence: None)
  Receive Date: 20110513
  Receipt Date: 20110430
  Transmission Date: 20111010
  Serious: Yes (Other)
  Sender: FDA-Public Use
  Company Number: CA-JNJFOC-20110500463

PATIENT
  Age: 61 Year
  Sex: Female

DRUGS (2)
  1. INVEGA [Suspect]
     Dosage: FOR TWO WEEKS
     Route: 048
  2. INVEGA [Suspect]
     Indication: SCHIZOPHRENIA
     Route: 048

REACTIONS (5)
  - DRUG INEFFECTIVE [None]
  - ALANINE AMINOTRANSFERASE INCREASED [None]
  - GAMMA-GLUTAMYLTRANSFERASE INCREASED [None]
  - ACUTE PSYCHOSIS [None]
  - HYPERHIDROSIS [None]
